FAERS Safety Report 24969916 (Version 1)
Quarter: 2025Q1

REPORT INFORMATION
  Report Type: Spontaneous
  Country: US (occurrence: None)
  Receive Date: 20250213
  Receipt Date: 20250213
  Transmission Date: 20250408
  Serious: Yes (unspecified)
  Sender: FDA-CTU
  Company Number: None

PATIENT
  Age: 60 Year
  Sex: Male
  Weight: 47.63 kg

DRUGS (1)
  1. HYDROCHLOROTHIAZIDE\LISINOPRIL [Suspect]
     Active Substance: HYDROCHLOROTHIAZIDE\LISINOPRIL
     Indication: Hypertension
     Dates: end: 202408

REACTIONS (1)
  - Alopecia [None]

NARRATIVE: CASE EVENT DATE: 20240701
